FAERS Safety Report 7417731-1 (Version None)
Quarter: 2011Q2

REPORT INFORMATION
  Report Type: 
  Country: None (occurrence: None)
  Receive Date: 20110415
  Receipt Date: 20110412
  Transmission Date: 20111010
  Serious: Yes (Death, Hospitalization)
  Sender: FDA-Public Use
  Company Number: PHHY2011US30192

PATIENT
  Sex: Male
  Weight: 79.47 kg

DRUGS (11)
  1. FLOMAX [Concomitant]
  2. AMBIEN [Concomitant]
  3. PREDNISONE [Concomitant]
  4. OMEPRAZOLE [Concomitant]
  5. BENADRYL [Concomitant]
  6. TIMOLOL [Concomitant]
  7. ASPIRIN [Concomitant]
  8. LASIX [Concomitant]
  9. FIBER-LAX [Concomitant]
  10. ACETAMINOPHEN [Concomitant]
  11. EXJADE [Suspect]
     Indication: MYELOFIBROSIS
     Dosage: 1000 MG,DAILY
     Route: 048
     Dates: start: 20110309

REACTIONS (3)
  - NEOPLASM MALIGNANT [None]
  - MYELOFIBROSIS [None]
  - ABASIA [None]
